FAERS Safety Report 8379940-7 (Version None)
Quarter: 2012Q1

REPORT INFORMATION
  Report Type: 
  Country: None (occurrence: None)
  Receive Date: 20120323
  Receipt Date: 20110307
  Transmission Date: 20120608
  Serious: Yes (Hospitalization, Other)
  Sender: FDA-Public Use
  Company Number: 163-21880-11030944

PATIENT
  Age: 73 Year
  Sex: Male

DRUGS (9)
  1. DILAUDID [Concomitant]
  2. MECLIZINE [Concomitant]
  3. GABAPENTIN [Concomitant]
  4. REVLIMID [Suspect]
     Indication: MULTIPLE MYELOMA
     Dosage: 10 MG, DAILY X 21 DAYS, PO
     Route: 048
     Dates: start: 20110221
  5. AVODART [Concomitant]
  6. LASIX [Concomitant]
  7. FLOMAX [Concomitant]
  8. ACYCLOVIR [Concomitant]
  9. ASPIRIN [Concomitant]

REACTIONS (1)
  - FALL [None]
